FAERS Safety Report 5428370-6 (Version None)
Quarter: 2007Q3

REPORT INFORMATION
  Report Type: 
  Country: None (occurrence: None)
  Receive Date: 20070828
  Receipt Date: 20070821
  Transmission Date: 20080115
  Serious: Yes (Hospitalization)
  Sender: FDA-Public Use
  Company Number: TR-ABBOTT-07P-161-0378461-00

PATIENT
  Age: 52 Year
  Sex: Male

DRUGS (2)
  1. BIPERIDEN HYDROCHLORIDE TAB [Suspect]
     Indication: PSYCHOTIC DISORDER
     Route: 030
  2. BIPERIDEN HYDROCHLORIDE TAB [Suspect]
     Route: 048

REACTIONS (2)
  - OFF LABEL USE [None]
  - SUBCUTANEOUS ABSCESS [None]
